FAERS Safety Report 19353081 (Version 1)
Quarter: 2021Q2

REPORT INFORMATION
  Report Type: Spontaneous
  Country: FR (occurrence: FR)
  Receive Date: 20210601
  Receipt Date: 20210601
  Transmission Date: 20210717
  Serious: Yes (Hospitalization)
  Sender: FDA-Public Use
  Company Number: FR-PFIZER INC-2021572568

PATIENT
  Age: 69 Year
  Sex: Female
  Weight: 69 kg

DRUGS (6)
  1. OLANZAPINE. [Suspect]
     Active Substance: OLANZAPINE
     Dosage: 10 MG ONCE
     Route: 048
     Dates: start: 20210427, end: 20210427
  2. THERALENE [Suspect]
     Active Substance: TRIMEPRAZINE
     Dosage: 100 DF ONCE
     Route: 048
     Dates: start: 20210427, end: 20210427
  3. XANAX [Suspect]
     Active Substance: ALPRAZOLAM
     Dosage: 0.25 MG ONCE
     Route: 048
     Dates: start: 20210427, end: 20210427
  4. TERCIAN [CYAMEMAZINE TARTRATE] [Suspect]
     Active Substance: CYAMEMAZINE
     Dosage: 25 MG ONCE
     Route: 048
     Dates: start: 20210427, end: 20210427
  5. NOCTAMID [Suspect]
     Active Substance: LORMETAZEPAM
     Dosage: 1 DF ONCE
     Route: 048
     Dates: start: 20210427, end: 20210427
  6. IMOVANE [Suspect]
     Active Substance: ZOPICLONE
     Dosage: 1 DF ONCE
     Route: 048
     Dates: start: 20210427, end: 20210427

REACTIONS (2)
  - Coma [Recovered/Resolved]
  - Wrong patient [Recovered/Resolved]

NARRATIVE: CASE EVENT DATE: 20210427
